FAERS Safety Report 4599589-1 (Version None)
Quarter: 2005Q1

REPORT INFORMATION
  Report Type: 
  Country: None (occurrence: None)
  Receive Date: 20050303
  Receipt Date: 20050216
  Transmission Date: 20050727
  Serious: Yes (Death)
  Sender: FDA-Public Use
  Company Number: SUSI-2005-00116

PATIENT
  Age: 11 Year
  Sex: Male

DRUGS (3)
  1. ADDERALL XR 10 [Suspect]
     Indication: ATTENTION DEFICIT/HYPERACTIVITY DISORDER
     Dosage: 15 MG, 1X/DAY:QD
     Dates: start: 20040429, end: 20040801
  2. WELLBUTRIN SR [Suspect]
     Dosage: 300 MG/DAY; SEE IMAGE
  3. STRATTERA [Suspect]

REACTIONS (3)
  - CARDIO-RESPIRATORY ARREST [None]
  - COMA [None]
  - FATIGUE [None]
